FAERS Safety Report 7374595-2 (Version None)
Quarter: 2011Q1

REPORT INFORMATION
  Report Type: 
  Country: None (occurrence: None)
  Receive Date: 20110325
  Receipt Date: 20100419
  Transmission Date: 20110831
  Serious: No
  Sender: FDA-Public Use
  Company Number: US-MYLANLABS-2010S1006886

PATIENT
  Age: 61 Year
  Sex: Female
  Weight: 63.96 kg

DRUGS (3)
  1. HYDROCODONE BITARTRATE [Concomitant]
     Indication: BREAKTHROUGH PAIN
     Dates: start: 20090101
  2. FENTANYL-100 [Suspect]
     Indication: PAIN
     Dosage: CHANGED Q. 72 HOURS.
     Route: 062
     Dates: start: 20091001
  3. NORVASC [Concomitant]
     Indication: HYPERTENSION
     Dates: start: 20040101

REACTIONS (1)
  - FALSE NEGATIVE INVESTIGATION RESULT [None]
